FAERS Safety Report 4606935-9 (Version None)
Quarter: 2005Q1

REPORT INFORMATION
  Report Type: 
  Country: None (occurrence: None)
  Receive Date: 20050309
  Receipt Date: 20050301
  Transmission Date: 20050727
  Serious: Yes (Death, Hospitalization)
  Sender: FDA-Public Use
  Company Number: 163-20785-04080176

PATIENT
  Age: 73 Week
  Sex: Male

DRUGS (7)
  1. THALOMID [Suspect]
     Indication: MULTIPLE MYELOMA
     Dosage: 200 MG, QD, ORAL
     Route: 048
     Dates: start: 20040622, end: 20040808
  2. DEXAMETHASONE [Suspect]
     Indication: MULTIPLE MYELOMA
     Dosage: 20 MG, X 4 DAYS MONTHLY, ORAL
     Route: 048
  3. WARFARIN SODIUM [Concomitant]
  4. ATIVAN [Concomitant]
  5. INSULIN [Concomitant]
  6. SYNTHROID [Concomitant]
  7. ALENDRONATE (ALENDRONATE) [Concomitant]

REACTIONS (2)
  - CONVULSION [None]
  - PNEUMONIA ASPIRATION [None]
